FAERS Safety Report 18259595 (Version 2)
Quarter: 2021Q1

REPORT INFORMATION
  Report Type: Spontaneous
  Country: US (occurrence: US)
  Receive Date: 20200911
  Receipt Date: 20210219
  Transmission Date: 20210419
  Serious: Yes (Other)
  Sender: FDA-Public Use
  Company Number: US-BIOMARINAP-US-2020-131852

PATIENT
  Age: 2 Year
  Sex: Male

DRUGS (2)
  1. ALDURAZYME [Suspect]
     Active Substance: LARONIDASE
     Indication: MUCOPOLYSACCHARIDOSIS I
     Dosage: 5.8 MILLIGRAM, QW
     Route: 041
     Dates: start: 20200514
  2. ALDURAZYME [Suspect]
     Active Substance: LARONIDASE
     Dosage: 5.8 MILLIGRAM, QW
     Route: 041
     Dates: start: 20200806

REACTIONS (4)
  - Sleep deficit [Recovering/Resolving]
  - Immunology test abnormal [Recovering/Resolving]
  - Irritability [Recovering/Resolving]
  - Vascular device infection [Recovering/Resolving]
